FAERS Safety Report 5188821-1 (Version None)
Quarter: 2006Q4

REPORT INFORMATION
  Report Type: 
  Country: None (occurrence: None)
  Receive Date: 20061214
  Receipt Date: 20061201
  Transmission Date: 20070319
  Serious: Yes (Other)
  Sender: FDA-Public Use
  Company Number: CIO06006996

PATIENT
  Age: 38 Year
  Sex: Female

DRUGS (3)
  1. CREST PRO-HEALTH TOOTHPAST, [Suspect]
     Dosage: 1 APPLIC, 1 ONLY FOR 1 DAY, INTRAORAL
     Route: 048
     Dates: start: 20060505, end: 20060505
  2. SYNTHROID [Concomitant]
  3. BENICAR [Concomitant]

REACTIONS (2)
  - ANAPHYLACTIC SHOCK [None]
  - DRUG EXPOSURE DURING PREGNANCY [None]
